FAERS Safety Report 7236565-4 (Version None)
Quarter: 2011Q1

REPORT INFORMATION
  Report Type: 
  Country: None (occurrence: None)
  Receive Date: 20110120
  Receipt Date: 20110113
  Transmission Date: 20110831
  Serious: Yes (Hospitalization)
  Sender: FDA-Public Use
  Company Number: DE-CEPHALON-2011000280

PATIENT
  Sex: Male
  Weight: 85 kg

DRUGS (8)
  1. VERGENTAN [Suspect]
     Indication: VOMITING
     Route: 048
     Dates: start: 20100122, end: 20100123
  2. KEVATRIL [Suspect]
     Indication: VOMITING
     Route: 042
     Dates: start: 20100120, end: 20100323
  3. RANITIDINE HCL [Concomitant]
  4. ALLOPURINOL [Suspect]
     Indication: VOMITING
     Route: 048
     Dates: start: 20100119, end: 20100318
  5. PREDNISOLONE [Concomitant]
  6. BENDAMUSTINE HCL [Suspect]
     Indication: CHRONIC LYMPHOCYTIC LEUKAEMIA
     Route: 042
     Dates: start: 20100119, end: 20100318
  7. RITUXIMAB [Suspect]
     Indication: CHRONIC LYMPHOCYTIC LEUKAEMIA
     Route: 042
     Dates: end: 20100318
  8. TAVEGIL [Concomitant]

REACTIONS (2)
  - INTERSTITIAL LUNG DISEASE [None]
  - SEPSIS [None]
